FAERS Safety Report 24034640 (Version 4)
Quarter: 2024Q3

REPORT INFORMATION
  Report Type: Report from Study
  Country: BR (occurrence: BR)
  Receive Date: 20240701
  Receipt Date: 20240710
  Transmission Date: 20241017
  Serious: No
  Sender: ROCHE
  Company Number: BR-ROCHE-3556128

PATIENT
  Age: 12 Year
  Sex: Female

DRUGS (1)
  1. EVRYSDI [Suspect]
     Active Substance: RISDIPLAM
     Indication: Spinal muscular atrophy
     Route: 065

REACTIONS (3)
  - Product quality issue [Unknown]
  - Abdominal distension [Unknown]
  - Product administration error [Unknown]

NARRATIVE: CASE EVENT DATE: 20240428
